FAERS Safety Report 4276381-9 (Version None)
Quarter: 2004Q1

REPORT INFORMATION
  Report Type: 
  Country: None (occurrence: None)
  Receive Date: 20040120
  Receipt Date: 20040120
  Transmission Date: 20041129
  Serious: No
  Sender: FDA-Public Use
  Company Number: None

PATIENT
  Age: 74 Year
  Sex: Male
  Weight: 105.6 kg

DRUGS (2)
  1. WARFARIN SODIUM [Suspect]
     Indication: PROTEIN C DEFICIENCY
     Dosage: 1.5MG, QD EXCEP, PO
     Route: 048
     Dates: start: 20030829, end: 20030903
  2. PHYTONADIONE [Concomitant]

REACTIONS (2)
  - HAEMATURIA [None]
  - SKIN ULCER HAEMORRHAGE [None]
